FAERS Safety Report 21264970 (Version 1)
Quarter: 2022Q3

REPORT INFORMATION
  Report Type: Spontaneous
  Country: NL (occurrence: NL)
  Receive Date: 20220829
  Receipt Date: 20220829
  Transmission Date: 20221027
  Serious: Yes (Disabling)
  Sender: FDA-Public Use
  Company Number: None

PATIENT
  Sex: Female
  Weight: 60 kg

DRUGS (3)
  1. CIPROFLOXACIN [Suspect]
     Active Substance: CIPROFLOXACIN
     Indication: Urinary tract infection
     Dosage: 1000 MILLIGRAM DAILY; 2 X PER DAY 1,  BRAND NAME NOT SPECIFIED
     Dates: start: 20220309, end: 20220314
  2. CIPROFLOXACIN [Suspect]
     Active Substance: CIPROFLOXACIN
     Indication: Pyrexia
  3. XARELTO [Concomitant]
     Active Substance: RIVAROXABAN
     Indication: Product used for unknown indication
     Dosage: FORM STRENGTH 20 MG , THERAPY END DATE: ASKU
     Dates: start: 202111

REACTIONS (1)
  - Cerebral haemorrhage [Recovering/Resolving]
